FAERS Safety Report 5490265-X (Version None)
Quarter: 2007Q4

REPORT INFORMATION
  Report Type: 
  Country: None (occurrence: None)
  Receive Date: 20071015
  Receipt Date: 20070630
  Transmission Date: 20080405
  Serious: No
  Sender: FDA-Public Use
  Company Number: 2007SP002424

PATIENT
  Age: 83 Year
  Sex: Female
  Weight: 54.4316 kg

DRUGS (4)
  1. LUNESTA [Suspect]
     Indication: INSOMNIA
     Dosage: 3 MG; HS; ORAL
     Route: 048
     Dates: start: 20070601, end: 20070701
  2. XANAX [Concomitant]
  3. LOVASTATIN [Concomitant]
  4. TEMAZEPAM [Concomitant]

REACTIONS (1)
  - INSOMNIA [None]
